FAERS Safety Report 4423358-6 (Version None)
Quarter: 2004Q3

REPORT INFORMATION
  Report Type: 
  Country: None (occurrence: None)
  Receive Date: 20040806
  Receipt Date: 20040802
  Transmission Date: 20050211
  Serious: Yes (Hospitalization)
  Sender: FDA-Public Use
  Company Number: 04-08-1115

PATIENT
  Age: 64 Year
  Sex: Male

DRUGS (2)
  1. CLOZAPINE [Suspect]
     Indication: SCHIZOPHRENIA
     Dosage: 200-375MG QD ORAL
     Route: 048
  2. CLOMIPRAMINE HCL [Suspect]
     Indication: DEPRESSION
     Dosage: 75-200MG QD

REACTIONS (12)
  - BARIUM SWALLOW ABNORMAL [None]
  - CHOKING [None]
  - CIRCULATORY COLLAPSE [None]
  - DYSKINESIA [None]
  - DYSPHAGIA [None]
  - GASTROOESOPHAGEAL SPHINCTER INSUFFICIENCY [None]
  - HICCUPS [None]
  - OESOPHAGEAL DILATATION [None]
  - OESOPHAGEAL DISORDER [None]
  - PNEUMONIA ASPIRATION [None]
  - REGURGITATION OF FOOD [None]
  - RESPIRATORY DISTRESS [None]
